FAERS Safety Report 19435332 (Version 5)
Quarter: 2022Q1

REPORT INFORMATION
  Report Type: Report from Study
  Country: US (occurrence: US)
  Receive Date: 20210617
  Receipt Date: 20220224
  Transmission Date: 20220423
  Serious: Yes (Hospitalization, Other)
  Sender: FDA-Public Use
  Company Number: US-ABBVIE-21K-163-3953223-00

PATIENT
  Sex: Female

DRUGS (22)
  1. RINVOQ [Suspect]
     Active Substance: UPADACITINIB
     Indication: Rheumatoid arthritis
     Route: 048
     Dates: start: 2021
  2. MODERNA COVID-19 VACCINE [Concomitant]
     Active Substance: ELASOMERAN
     Indication: COVID-19 immunisation
     Dosage: DOSE 1
     Route: 030
     Dates: start: 20201225, end: 20201225
  3. MODERNA COVID-19 VACCINE [Concomitant]
     Active Substance: ELASOMERAN
     Dosage: DOSE 2
     Route: 030
     Dates: start: 2021, end: 2021
  4. MODERNA COVID-19 VACCINE [Concomitant]
     Active Substance: ELASOMERAN
     Dosage: DOSE 3
     Route: 030
     Dates: start: 202111, end: 202111
  5. PEPCID [Concomitant]
     Active Substance: FAMOTIDINE
     Indication: Gastric disorder
  6. PEPCID [Concomitant]
     Active Substance: FAMOTIDINE
     Indication: Diuretic therapy
  7. CYMBALTA [Concomitant]
     Active Substance: DULOXETINE HYDROCHLORIDE
     Indication: Anxiety
  8. ELIQUIS [Concomitant]
     Active Substance: APIXABAN
     Indication: Anticoagulant therapy
  9. MAGNESIUM [Concomitant]
     Active Substance: MAGNESIUM
     Indication: Product used for unknown indication
  10. METOPROLOL SUCCINATE [Concomitant]
     Active Substance: METOPROLOL SUCCINATE
     Indication: Blood pressure measurement
  11. PRILOSEC [Concomitant]
     Active Substance: OMEPRAZOLE MAGNESIUM
     Indication: Product used for unknown indication
  12. OXYBUTYNIN [Concomitant]
     Active Substance: OXYBUTYNIN
     Indication: Urinary incontinence
  13. AZULFIDINE [Concomitant]
     Active Substance: SULFASALAZINE
     Indication: Arthritis
  14. AZULFIDINE [Concomitant]
     Active Substance: SULFASALAZINE
     Indication: Colitis ulcerative
  15. TIZANIDINE [Concomitant]
     Active Substance: TIZANIDINE
     Indication: Muscle relaxant therapy
  16. INSULIN NOS [Concomitant]
     Active Substance: INSULIN NOS
     Indication: Diabetes mellitus
  17. TRAZODONE [Concomitant]
     Active Substance: TRAZODONE HYDROCHLORIDE
     Indication: Anxiety
  18. AMITRIPTYLINE [Concomitant]
     Active Substance: AMITRIPTYLINE
     Indication: Neuropathy peripheral
  19. AMITRIPTYLINE [Concomitant]
     Active Substance: AMITRIPTYLINE
     Indication: Asthenia
  20. AMITRIPTYLINE [Concomitant]
     Active Substance: AMITRIPTYLINE
     Indication: Hypoaesthesia
  21. MIRALAX [Concomitant]
     Active Substance: POLYETHYLENE GLYCOL 3350
     Indication: Constipation
  22. MIRALAX [Concomitant]
     Active Substance: POLYETHYLENE GLYCOL 3350
     Indication: Diarrhoea

REACTIONS (53)
  - Hypertension [Unknown]
  - Respiratory disorder [Unknown]
  - Atrial fibrillation [Recovering/Resolving]
  - Cardiac failure congestive [Recovering/Resolving]
  - Throat tightness [Recovering/Resolving]
  - Gastric disorder [Unknown]
  - Tongue disorder [Unknown]
  - Blood pressure decreased [Recovering/Resolving]
  - Heart rate irregular [Recovered/Resolved]
  - Angina pectoris [Recovering/Resolving]
  - Choking [Recovering/Resolving]
  - Pulmonary hypertension [Not Recovered/Not Resolved]
  - Joint swelling [Recovering/Resolving]
  - Lip pain [Not Recovered/Not Resolved]
  - Skin exfoliation [Not Recovered/Not Resolved]
  - Dry mouth [Not Recovered/Not Resolved]
  - Pain in extremity [Recovering/Resolving]
  - Muscular weakness [Not Recovered/Not Resolved]
  - Hypoaesthesia [Not Recovered/Not Resolved]
  - Peripheral coldness [Not Recovered/Not Resolved]
  - Skin discolouration [Not Recovered/Not Resolved]
  - Balance disorder [Not Recovered/Not Resolved]
  - Dizziness [Not Recovered/Not Resolved]
  - Eye pain [Not Recovered/Not Resolved]
  - Cystitis [Recovered/Resolved]
  - Back pain [Recovered/Resolved]
  - Kidney infection [Recovered/Resolved]
  - Oral mucosal eruption [Not Recovered/Not Resolved]
  - Dyspnoea [Not Recovered/Not Resolved]
  - Dysphonia [Recovered/Resolved]
  - Oropharyngeal pain [Recovered/Resolved]
  - Inner ear disorder [Not Recovered/Not Resolved]
  - Hypoacusis [Not Recovered/Not Resolved]
  - Dyspnoea [Unknown]
  - Abdominal discomfort [Not Recovered/Not Resolved]
  - Swelling face [Recovering/Resolving]
  - Lip disorder [Not Recovered/Not Resolved]
  - Discomfort [Unknown]
  - Abdominal pain upper [Unknown]
  - Pain in jaw [Unknown]
  - Oral pruritus [Not Recovered/Not Resolved]
  - Spinal stenosis [Unknown]
  - Arthritis [Unknown]
  - Oral pain [Unknown]
  - Abdominal discomfort [Unknown]
  - Swelling face [Recovering/Resolving]
  - Swollen tongue [Recovering/Resolving]
  - Lip swelling [Recovering/Resolving]
  - Ear swelling [Recovering/Resolving]
  - Mouth swelling [Recovering/Resolving]
  - Oral mucosal erythema [Not Recovered/Not Resolved]
  - Oral mucosal blistering [Not Recovered/Not Resolved]
  - Fatigue [Unknown]

NARRATIVE: CASE EVENT DATE: 20210101
